FAERS Safety Report 7082955-2 (Version None)
Quarter: 2010Q4

REPORT INFORMATION
  Report Type: 
  Country: None (occurrence: None)
  Receive Date: 20101026
  Receipt Date: 20101011
  Transmission Date: 20110411
  Serious: Yes (Hospitalization, Other)
  Sender: FDA-Public Use
  Company Number: ALA_00942_2010

PATIENT
  Age: 35 Year
  Sex: Female

DRUGS (2)
  1. MESALAMINE [Suspect]
     Indication: COLITIS ULCERATIVE
     Dosage: (4 G QD RECTAL)
     Route: 054
  2. PENTASA [Suspect]
     Indication: COLITIS ULCERATIVE
     Dosage: (4 G ORAL), (DF ORAL)
     Route: 048

REACTIONS (5)
  - C-REACTIVE PROTEIN INCREASED [None]
  - DRUG ERUPTION [None]
  - RASH ERYTHEMATOUS [None]
  - SKIN LESION [None]
  - WHITE BLOOD CELL COUNT INCREASED [None]
